FAERS Safety Report 19987546 (Version 1)
Quarter: 2021Q4

REPORT INFORMATION
  Report Type: Spontaneous
  Country: PT (occurrence: PT)
  Receive Date: 20211022
  Receipt Date: 20211022
  Transmission Date: 20220303
  Serious: Yes (Hospitalization, Other)
  Sender: FDA-Public Use
  Company Number: PT-AMGEN-PRTSP2021152083

PATIENT
  Age: 56 Year
  Sex: Male
  Weight: 89.8 kg

DRUGS (9)
  1. BEVACIZUMAB [Suspect]
     Active Substance: BEVACIZUMAB
     Indication: Colorectal cancer metastatic
     Dosage: 1 UNKNOWN DOSAGE, 2X/WEEK
     Route: 042
     Dates: start: 20200811, end: 20210216
  2. FLUOROURACIL [Concomitant]
     Active Substance: FLUOROURACIL
     Indication: Colorectal cancer metastatic
     Dosage: UNK, 2X/WEEK
     Route: 042
     Dates: start: 20200811, end: 20210216
  3. FLUOROURACIL [Concomitant]
     Active Substance: FLUOROURACIL
     Dosage: 760 MILLIGRAM, EVERY 15 DAYS
     Route: 040
     Dates: start: 20210901, end: 20210901
  4. FLUOROURACIL [Concomitant]
     Active Substance: FLUOROURACIL
     Dosage: 4500 MG, EVERY 15 DAYS
     Route: 042
     Dates: start: 20210901, end: 20210901
  5. PANITUMUMAB [Concomitant]
     Active Substance: PANITUMUMAB
     Indication: Colorectal cancer metastatic
     Dosage: 480 MILLIGRAM, EVERY 15 DAYS
     Route: 042
     Dates: start: 20210901, end: 20210901
  6. LEUCOVORIN [Concomitant]
     Active Substance: LEUCOVORIN
     Indication: Colorectal cancer metastatic
     Dosage: UNK UNK, 2X/WEEK
     Route: 042
     Dates: start: 20200811, end: 20210216
  7. LEUCOVORIN [Concomitant]
     Active Substance: LEUCOVORIN
     Dosage: 380 MILLIGRAM, EVERY 15 DAYS
     Route: 042
     Dates: start: 20210901, end: 20210901
  8. IRINOTECAN [Concomitant]
     Active Substance: IRINOTECAN
     Indication: Colorectal cancer metastatic
     Dosage: 340 MILLIGRAM, EVERY 15 DAYS
     Route: 042
     Dates: start: 20210901, end: 20210901
  9. OXALIPLATIN [Concomitant]
     Active Substance: OXALIPLATIN
     Indication: Colorectal cancer metastatic
     Dosage: FREQ:2 WK;UNK UNK, Q2WK
     Route: 042
     Dates: start: 20200811, end: 20210216

REACTIONS (5)
  - Colitis [Recovered/Resolved]
  - Diarrhoea [Recovered/Resolved]
  - Pyrexia [Recovered/Resolved]
  - Colorectal cancer [Unknown]
  - Off label use [Unknown]

NARRATIVE: CASE EVENT DATE: 20210911
